FAERS Safety Report 8430556-3 (Version None)
Quarter: 2012Q2

REPORT INFORMATION
  Report Type: 
  Country: None (occurrence: None)
  Receive Date: 20120612
  Receipt Date: 20120607
  Transmission Date: 20120825
  Serious: Yes (Hospitalization)
  Sender: FDA-Public Use
  Company Number: JP-GLAXOSMITHKLINE-B0802187A

PATIENT
  Sex: Male
  Weight: 54 kg

DRUGS (16)
  1. ALOSENN [Concomitant]
     Dosage: 1G PER DAY
     Route: 048
  2. GASMOTIN [Concomitant]
     Dosage: 15MG PER DAY
     Route: 048
  3. ALLOPURINOL [Concomitant]
     Dosage: 100MG PER DAY
     Route: 048
  4. NEXIUM [Concomitant]
     Dosage: 20MG PER DAY
     Route: 048
  5. MUCOSTA [Concomitant]
     Dosage: 300MG PER DAY
     Route: 048
  6. HYPOCA [Concomitant]
     Dosage: 30MG PER DAY
     Route: 048
  7. DIFLUNISAL [Concomitant]
     Route: 048
  8. TANATRIL [Concomitant]
     Dosage: 5MG PER DAY
     Route: 048
  9. PRECIPITATED CALCIUM CARBONATE [Concomitant]
     Dosage: 6000MG PER DAY
     Route: 048
  10. VALTREX [Suspect]
     Indication: HERPES ZOSTER
     Dosage: 1000MG PER DAY
     Route: 048
     Dates: start: 20120509, end: 20120510
  11. FUROSEMIDE [Concomitant]
     Dosage: 40MG PER DAY
     Route: 048
  12. PLETAL [Concomitant]
     Dosage: 100MG PER DAY
     Route: 048
  13. KAYEXALATE [Concomitant]
     Dosage: 9.81G PER DAY
     Route: 048
  14. ASPENON [Concomitant]
     Dosage: 40MG PER DAY
     Route: 048
  15. ROCALTROL [Concomitant]
     Dosage: .25MCG PER DAY
     Route: 048
  16. AMOBAN [Concomitant]
     Dosage: 7.5MG PER DAY
     Route: 048

REACTIONS (9)
  - DELUSION [None]
  - ABNORMAL BEHAVIOUR [None]
  - ASTERIXIS [None]
  - TOXIC ENCEPHALOPATHY [None]
  - DYSARTHRIA [None]
  - ATAXIA [None]
  - HALLUCINATION [None]
  - YAWNING [None]
  - GAIT DISTURBANCE [None]
